FAERS Safety Report 5123300-9 (Version None)
Quarter: 2006Q4

REPORT INFORMATION
  Report Type: 
  Country: None (occurrence: None)
  Receive Date: 20061009
  Receipt Date: 20061004
  Transmission Date: 20070319
  Serious: Yes (Life-Threatening, Hospitalization, Other)
  Sender: FDA-Public Use
  Company Number: AU-BRISTOL-MYERS SQUIBB COMPANY-13529904

PATIENT
  Age: 37 Year
  Sex: Male

DRUGS (3)
  1. REYATAZ [Suspect]
     Indication: HIV INFECTION
     Route: 048
     Dates: start: 20050210
  2. ALCOHOL [Interacting]
  3. COMBIVIR [Concomitant]
     Indication: HIV INFECTION
     Route: 048

REACTIONS (2)
  - ASTHMA [None]
  - DRUG INTERACTION [None]
